FAERS Safety Report 22000812 (Version 1)
Quarter: 2023Q1

REPORT INFORMATION
  Report Type: Spontaneous
  Country: CA (occurrence: CA)
  Receive Date: 20230216
  Receipt Date: 20230216
  Transmission Date: 20230418
  Serious: Yes (Other)
  Sender: FDA-Public Use
  Company Number: CA-002147023-NVSC2023CA030506

PATIENT
  Age: 3 Year
  Sex: Female

DRUGS (6)
  1. TOPOTECAN [Suspect]
     Active Substance: TOPOTECAN HYDROCHLORIDE
     Indication: Chemotherapy
     Dosage: UNK
     Route: 065
  2. ETOPOSIDE [Suspect]
     Active Substance: ETOPOSIDE
     Indication: Chemotherapy
     Dosage: 100 MILLILITRE PER SQUARE METRE
     Route: 065
  3. CYCLOPHOSPHAMIDE [Suspect]
     Active Substance: CYCLOPHOSPHAMIDE
     Indication: Chemotherapy
     Dosage: 440 MILLILITRE PER SQUARE METRE
     Route: 065
  4. DOXORUBICIN [Suspect]
     Active Substance: DOXORUBICIN
     Indication: Chemotherapy
     Dosage: 22.5 MG/M2
     Route: 065
  5. IRINOTECAN HYDROCHLORIDE [Suspect]
     Active Substance: IRINOTECAN HYDROCHLORIDE
     Indication: Chemotherapy
     Dosage: UNK
     Route: 042
  6. VINCRISTINE SULFATE [Suspect]
     Active Substance: VINCRISTINE SULFATE
     Indication: Chemotherapy
     Dosage: 1.5 MILLILITRE PER SQUARE METRE
     Route: 065

REACTIONS (7)
  - Ascites [Unknown]
  - Hepatomegaly [Unknown]
  - Hypoalbuminaemia [Unknown]
  - Hypertransaminasaemia [Unknown]
  - Venoocclusive liver disease [Unknown]
  - Weight increased [Unknown]
  - Thrombocytopenia [Unknown]
